FAERS Safety Report 5572395-7 (Version None)
Quarter: 2007Q4

REPORT INFORMATION
  Report Type: 
  Country: None (occurrence: None)
  Receive Date: 20071222
  Receipt Date: 20071211
  Transmission Date: 20080405
  Serious: Yes (Hospitalization)
  Sender: FDA-Public Use
  Company Number: US-PFIZER INC-2007106273

PATIENT
  Sex: Female
  Weight: 72.3 kg

DRUGS (5)
  1. CHANTIX [Suspect]
     Indication: SMOKING CESSATION THERAPY
  2. MUCINEX [Concomitant]
     Indication: SINUS CONGESTION
  3. PROTONIX [Concomitant]
     Indication: ULCER
  4. MONTELUKAST SODIUM [Concomitant]
     Indication: CHRONIC OBSTRUCTIVE PULMONARY DISEASE
  5. ZETIA [Concomitant]
     Indication: BLOOD CHOLESTEROL

REACTIONS (2)
  - PLATELET COUNT INCREASED [None]
  - PNEUMONIA [None]
